FAERS Safety Report 9759660 (Version 1)
Quarter: 2013Q4

REPORT INFORMATION
  Report Type: Spontaneous
  Country: GB (occurrence: None)
  Receive Date: 20131212
  Receipt Date: 20131212
  Transmission Date: 20140711
  Serious: Yes (Hospitalization, Other)
  Sender: FDA-Public Use
  Company Number: AUR-APL-2013-10216

PATIENT
  Age: 59 Year
  Sex: Female
  Weight: 60 kg

DRUGS (8)
  1. BISOPROLOL (BISOPROLOL) [Suspect]
     Indication: ATRIAL FIBRILLATION
     Dosage: 1.25 MG (1.25 MG, 1 IN 1 D), ORAL
     Route: 048
  2. TRIMETHOPRIM (TRIMETHOPRIM) [Suspect]
     Indication: URINARY TRACT INFECTION
     Dosage: 400 MG (200 MG, 2 IN 1 D), ORAL
     Route: 048
     Dates: start: 20130830
  3. PALIPERIDONE [Suspect]
     Indication: SCHIZOPHRENIA
     Dosage: 150 MG, 1 IN 4 WK, INTRAMUSCULAR
     Route: 030
  4. CARBAMAZEPINE (CARBAMAZEPINE) [Concomitant]
  5. CARBIMAZOLE (CARBIMAZOLE) [Concomitant]
  6. LORAZEPAM (LORAZEPAM) [Concomitant]
  7. RISPERIDONE (RISPERIDONE) [Concomitant]
  8. VALPROIC ACID (VALPROIC ACID) [Concomitant]

REACTIONS (3)
  - Bradycardia [None]
  - Toxicity to various agents [None]
  - Blood potassium increased [None]
